FAERS Safety Report 24136866 (Version 3)
Quarter: 2024Q3

REPORT INFORMATION
  Report Type: Spontaneous
  Country: JP (occurrence: JP)
  Receive Date: 20240725
  Receipt Date: 20240830
  Transmission Date: 20241016
  Serious: Yes (Life-Threatening, Hospitalization, Other)
  Sender: CELLTRION
  Company Number: JP-JPNKAYAKU-2024JPNK040603

PATIENT

DRUGS (8)
  1. BEVACIZUMAB [Suspect]
     Active Substance: BEVACIZUMAB
     Indication: Ovarian cancer stage IV
     Dosage: 1100 MG, QD
     Route: 042
     Dates: start: 20240104
  2. BEVACIZUMAB [Suspect]
     Active Substance: BEVACIZUMAB
     Dosage: 1100 MG, QD
     Route: 042
     Dates: start: 20240130
  3. GEMCITABINE [Concomitant]
     Active Substance: GEMCITABINE
     Indication: Ovarian cancer stage IV
     Dosage: UNK
     Route: 065
  4. GEMCITABINE [Concomitant]
     Active Substance: GEMCITABINE
     Indication: Chemotherapy
     Dosage: UNK
     Route: 042
     Dates: start: 20240104, end: 20240130
  5. GEMCITABINE [Concomitant]
     Active Substance: GEMCITABINE
     Dosage: UNK
     Route: 042
     Dates: start: 20240409
  6. APREPITANT [Concomitant]
     Active Substance: APREPITANT
     Indication: Premedication
     Dosage: UNK
  7. APREPITANT [Concomitant]
     Active Substance: APREPITANT
     Dosage: UNK
     Route: 048
     Dates: start: 20240104, end: 20240130
  8. AMLODIPINE [Concomitant]
     Active Substance: AMLODIPINE BESYLATE
     Dosage: OD
     Route: 048
     Dates: start: 20240215

REACTIONS (5)
  - Mesenteric artery embolism [Recovered/Resolved]
  - Renal infarct [Recovering/Resolving]
  - Aortic thrombosis [Recovered/Resolved]
  - Splenic infarction [Unknown]
  - Underdose [Unknown]

NARRATIVE: CASE EVENT DATE: 20240201
